FAERS Safety Report 12659149 (Version 2)
Quarter: 2016Q3

REPORT INFORMATION
  Report Type: Spontaneous
  Country: US (occurrence: US)
  Receive Date: 20160817
  Receipt Date: 20160831
  Transmission Date: 20161109
  Serious: Yes (Other)
  Sender: FDA-Public Use
  Company Number: US-PFIZER INC-2016384048

PATIENT
  Age: 51 Year
  Sex: Female
  Weight: 61.22 kg

DRUGS (6)
  1. ATENOLOL. [Concomitant]
     Active Substance: ATENOLOL
     Indication: HYPERTENSION
     Dosage: 25 MG, 1X/DAY
     Route: 048
  2. ADVIL [Concomitant]
     Active Substance: IBUPROFEN
     Indication: HEADACHE
     Dosage: UNK, (ONE TABLET BY MOUTH, HAS TAKEN ABOUT 3 TABLETS OVER THE LAST TWO WEEKS)
     Route: 048
  3. PANTOPRAZOLE [Concomitant]
     Active Substance: PANTOPRAZOLE SODIUM
     Indication: BARRETT^S OESOPHAGUS
     Dosage: 40 MG, 1X/DAY
     Route: 048
     Dates: start: 2006
  4. EFFEXOR XR [Suspect]
     Active Substance: VENLAFAXINE HYDROCHLORIDE
     Indication: HOT FLUSH
     Dosage: 75 MG, SINGLE (ONE DOSE ONLY)
     Route: 048
     Dates: start: 20160808, end: 20160808
  5. ALEVE [Concomitant]
     Active Substance: NAPROXEN SODIUM
     Indication: BACK PAIN
     Dosage: UNK (THREE TABLETS BY MOUTH OVER THE LAST TWO WEEKS)
     Route: 048
     Dates: start: 2015
  6. CYCLOBENZAPRINE [Concomitant]
     Active Substance: CYCLOBENZAPRINE
     Indication: BACK DISORDER
     Dosage: 5 MG, AS NEEDED
     Route: 048
     Dates: start: 201606

REACTIONS (22)
  - Loss of consciousness [Unknown]
  - Insomnia [Recovering/Resolving]
  - Tremor [Not Recovered/Not Resolved]
  - Mydriasis [Recovering/Resolving]
  - Nervous system disorder [Unknown]
  - Decreased appetite [Unknown]
  - Nervous system disorder [Not Recovered/Not Resolved]
  - Off label use [Recovered/Resolved]
  - Abnormal dreams [Recovering/Resolving]
  - Condition aggravated [Not Recovered/Not Resolved]
  - Eating disorder [Not Recovered/Not Resolved]
  - Visual impairment [Unknown]
  - Paraesthesia [Recovering/Resolving]
  - Limb discomfort [Unknown]
  - Dyskinesia [Not Recovered/Not Resolved]
  - Dizziness [Not Recovered/Not Resolved]
  - Head discomfort [Not Recovered/Not Resolved]
  - Heart rate increased [Recovering/Resolving]
  - Asthenia [Not Recovered/Not Resolved]
  - Nausea [Not Recovered/Not Resolved]
  - Musculoskeletal disorder [Unknown]
  - Vision blurred [Unknown]

NARRATIVE: CASE EVENT DATE: 201608
